FAERS Safety Report 17589092 (Version 2)
Quarter: 2020Q1

REPORT INFORMATION
  Report Type: Spontaneous
  Country: IT (occurrence: IT)
  Receive Date: 20200327
  Receipt Date: 20200331
  Transmission Date: 20200409
  Serious: Yes (Hospitalization)
  Sender: FDA-Public Use
  Company Number: IT-BAXTER-2020BAX006816

PATIENT
  Age: 80 Year
  Sex: Female

DRUGS (2)
  1. DOXIL [Suspect]
     Active Substance: DOXORUBICIN HYDROCHLORIDE
     Indication: PERITONEAL CARCINOMA METASTATIC
     Route: 042
     Dates: start: 20190101, end: 20190629
  2. TRABECTEDINE [Suspect]
     Active Substance: TRABECTEDIN
     Indication: PERITONEAL CARCINOMA METASTATIC
     Route: 042
     Dates: start: 20190101, end: 20190629

REACTIONS (4)
  - Vomiting [Unknown]
  - Intestinal pseudo-obstruction [Unknown]
  - Pyrexia [Unknown]
  - Abdominal pain [Unknown]

NARRATIVE: CASE EVENT DATE: 20190629
